FAERS Safety Report 22113095 (Version 1)
Quarter: 2023Q1

REPORT INFORMATION
  Report Type: Spontaneous
  Country: IR (occurrence: IR)
  Receive Date: 20230320
  Receipt Date: 20230320
  Transmission Date: 20230417
  Serious: Yes (Death, Other)
  Sender: FDA-Public Use
  Company Number: IR-RK PHARMA, INC-20230300020

PATIENT
  Age: 51 Year
  Sex: Female

DRUGS (5)
  1. DICLOFENAC POTASSIUM [Suspect]
     Active Substance: DICLOFENAC POTASSIUM
     Indication: Pain
     Dosage: 100 MILLIGRAM, 6 TIMES A DAY
     Route: 054
     Dates: start: 202207
  2. CEPHALEXIN [Concomitant]
     Active Substance: CEPHALEXIN
     Indication: Product used for unknown indication
     Dosage: 500 MILLIGRAM, QID
     Dates: start: 202207
  3. HEPARIN [Concomitant]
     Active Substance: HEPARIN SODIUM
     Indication: Product used for unknown indication
     Dosage: 5000 INTERNATIONAL UNIT, BID
     Dates: start: 202207
  4. HEPARIN [Concomitant]
     Active Substance: HEPARIN SODIUM
     Dosage: 100 UNK
  5. MUCILLIUM [Concomitant]
     Indication: Product used for unknown indication
     Dosage: 1 SACHET, QD
     Dates: start: 202207

REACTIONS (6)
  - Cardiac arrest [Fatal]
  - Metabolic acidosis [None]
  - Overdose [None]
  - Toxicity to various agents [None]
  - Acute kidney injury [None]
  - Glossitis [None]

NARRATIVE: CASE EVENT DATE: 20220701
